FAERS Safety Report 23946356 (Version 1)
Quarter: 2024Q2

REPORT INFORMATION
  Report Type: Spontaneous
  Country: US (occurrence: None)
  Receive Date: 20240605
  Receipt Date: 20240605
  Transmission Date: 20240716
  Serious: Yes (Disabling)
  Sender: FDA-Public Use
  Company Number: None

PATIENT
  Age: 66 Year
  Sex: Female
  Weight: 83.25 kg

DRUGS (3)
  1. METHYLPREDNISOLONE [Suspect]
     Active Substance: METHYLPREDNISOLONE
     Indication: Pulpitis dental
     Dosage: 26 TABLETS DEC FROM 6  1ST DAY  ORAL
     Route: 048
     Dates: start: 20240604, end: 20240605
  2. METOPROLOL [Suspect]
     Active Substance: METOPROLOL
  3. ATORVASTATIN [Suspect]
     Active Substance: ATORVASTATIN

REACTIONS (1)
  - Alopecia [None]

NARRATIVE: CASE EVENT DATE: 20240605
